APPROVED DRUG PRODUCT: POTASSIUM CHLORIDE
Active Ingredient: POTASSIUM CHLORIDE
Strength: 2MEQ/ML
Dosage Form/Route: INJECTABLE;INJECTION
Application: A087362 | Product #001
Applicant: PHARMA SERVE INC SUB TORIGIAN LABORATORIES
Approved: Mar 8, 1983 | RLD: No | RS: No | Type: DISCN